FAERS Safety Report 6419033-9 (Version None)
Quarter: 2009Q4

REPORT INFORMATION
  Report Type: 
  Country: None (occurrence: None)
  Receive Date: 20091026
  Receipt Date: 20091022
  Transmission Date: 20100525
  Serious: Yes (Death, Life-Threatening, Hospitalization)
  Sender: FDA-Public Use
  Company Number: 20097255

PATIENT
  Age: 17 Year
  Sex: Male

DRUGS (1)
  1. LIORESAL [Suspect]
     Indication: MUSCLE SPASTICITY
     Dosage: 974.9 MCG, DAILY, INTRATHECAL
     Route: 037

REACTIONS (5)
  - CHOLECYSTECTOMY [None]
  - HYPOTENSION [None]
  - HYPOTONIA [None]
  - MUSCLE TIGHTNESS [None]
  - THERAPY REGIMEN CHANGED [None]
